FAERS Safety Report 12671815 (Version 2)
Quarter: 2016Q4

REPORT INFORMATION
  Report Type: Spontaneous
  Country: US (occurrence: US)
  Receive Date: 20160822
  Receipt Date: 20161024
  Transmission Date: 20170207
  Serious: Yes (Hospitalization, Other)
  Sender: FDA-Public Use
  Company Number: US-GLAXOSMITHKLINE-US2016118905

PATIENT
  Age: 56 Year
  Sex: Male

DRUGS (2)
  1. DILAUDID [Concomitant]
     Active Substance: HYDROMORPHONE HYDROCHLORIDE
  2. ADVAIR DISKUS [Suspect]
     Active Substance: FLUTICASONE PROPIONATE\SALMETEROL XINAFOATE
     Indication: CHRONIC OBSTRUCTIVE PULMONARY DISEASE
     Dosage: 1 PUFF(S), BID
     Route: 055
     Dates: start: 2014

REACTIONS (7)
  - Muscular weakness [Recovering/Resolving]
  - Pain [Recovering/Resolving]
  - Bone cancer [Unknown]
  - Testis cancer [Unknown]
  - Orchidectomy [Unknown]
  - Prostate cancer metastatic [Not Recovered/Not Resolved]
  - Expired product administered [Unknown]

NARRATIVE: CASE EVENT DATE: 201607
